FAERS Safety Report 8379204-1 (Version None)
Quarter: 2012Q1

REPORT INFORMATION
  Report Type: 
  Country: None (occurrence: None)
  Receive Date: 20120323
  Receipt Date: 20110316
  Transmission Date: 20120608
  Serious: Yes (Other)
  Sender: FDA-Public Use
  Company Number: 163-21880-11032229

PATIENT
  Sex: Female
  Weight: 65.9 kg

DRUGS (1)
  1. REVLIMID [Suspect]
     Indication: MULTIPLE MYELOMA
     Dosage: 15 MG, DAILY X 21 DAYS, THEN 7 DAYS OFF, PO
     Route: 048
     Dates: start: 20100427

REACTIONS (1)
  - THROMBOSIS [None]
